FAERS Safety Report 6357254-4 (Version None)
Quarter: 2009Q3

REPORT INFORMATION
  Report Type: 
  Country: None (occurrence: None)
  Receive Date: 20090916
  Receipt Date: 20090902
  Transmission Date: 20100115
  Serious: Yes (Other)
  Sender: FDA-Public Use
  Company Number: PHEH2009US10368

PATIENT
  Sex: Male

DRUGS (1)
  1. DESFERAL [Suspect]

REACTIONS (1)
  - LARGE INTESTINAL ULCER [None]
